FAERS Safety Report 9993636 (Version 1)
Quarter: 2014Q1

REPORT INFORMATION
  Report Type: Spontaneous
  Country: IT (occurrence: IT)
  Receive Date: 20140310
  Receipt Date: 20140310
  Transmission Date: 20141002
  Serious: Yes (Life-Threatening)
  Sender: FDA-Public Use
  Company Number: IT-WATSON-2014-04021

PATIENT
  Age: 60 Year
  Sex: Male

DRUGS (7)
  1. REMIFENTANIL (UNKNOWN) [Suspect]
     Indication: ANAESTHESIA
     Dosage: 40 MG, TOTAL
     Route: 042
     Dates: start: 20130719, end: 20130719
  2. CEFAZOLIN [Suspect]
     Indication: PROPHYLAXIS
     Dosage: 2 G, TOTAL
     Route: 042
     Dates: start: 20130719, end: 20130719
  3. CISATRACURIUM (UNKNOWN) [Suspect]
     Indication: ANAESTHESIA
     Dosage: 12 MG, TOTAL
     Route: 042
     Dates: start: 20130719, end: 20130719
  4. PROPOFOL (UNKNOWN) [Suspect]
     Indication: ANAESTHESIA
     Dosage: 160 MG, TOTAL
     Route: 042
     Dates: start: 20130719, end: 20130719
  5. AMLODIPINE BESYLATE [Concomitant]
     Indication: HYPERTENSION
     Dosage: 5 MG, UNK
     Route: 048
  6. TELMISARTAN [Concomitant]
     Indication: HYPERTENSION
     Dosage: 80 MG, UNK
     Route: 048
     Dates: start: 20130610, end: 20140219
  7. ALLOPURINOL [Concomitant]
     Indication: HYPERURICAEMIA
     Dosage: 100 MG, UNK
     Route: 048

REACTIONS (4)
  - Anaphylactic shock [Recovered/Resolved]
  - Hypotension [Recovered/Resolved]
  - Angioedema [Recovered/Resolved]
  - Erythema [Recovered/Resolved]
